FAERS Safety Report 8033488-8 (Version None)
Quarter: 2012Q1

REPORT INFORMATION
  Report Type: 
  Country: None (occurrence: None)
  Receive Date: 20120110
  Receipt Date: 20120109
  Transmission Date: 20120608
  Serious: Yes (Death)
  Sender: FDA-Public Use
  Company Number: US-ROCHE-1028730

PATIENT
  Sex: Female

DRUGS (2)
  1. AVASTIN [Suspect]
     Indication: BREAST CANCER METASTATIC
     Route: 042
     Dates: start: 20111013
  2. TAXOL [Suspect]
     Indication: BREAST CANCER METASTATIC

REACTIONS (3)
  - HAEMOPTYSIS [None]
  - EPISTAXIS [None]
  - DEATH [None]
